FAERS Safety Report 18980549 (Version 1)
Quarter: 2021Q1

REPORT INFORMATION
  Report Type: Spontaneous
  Country: US (occurrence: US)
  Receive Date: 20210305
  Receipt Date: 20210305
  Transmission Date: 20210420
  Serious: Yes (Other)
  Sender: FDA-Public Use
  Company Number: None

PATIENT
  Age: 68 Year
  Sex: Male
  Weight: 71.5 kg

DRUGS (1)
  1. TRIFERIC [Suspect]
     Active Substance: FERRIC PYROPHOSPHATE CITRATE
     Indication: HAEMODIALYSIS
     Dosage: ?          QUANTITY:1PK?}25 GALLS H2O;OTHER FREQUENCY:EVERY DIALYSIS TX;OTHER ROUTE:VIA CENTRAL BICARB LOOP?
     Dates: start: 20210209, end: 20210213

REACTIONS (2)
  - Thrombosis in device [None]
  - Dialysis [None]

NARRATIVE: CASE EVENT DATE: 20210213
